FAERS Safety Report 22988836 (Version 5)
Quarter: 2023Q4

REPORT INFORMATION
  Report Type: Spontaneous
  Country: US (occurrence: US)
  Receive Date: 20230926
  Receipt Date: 20231020
  Transmission Date: 20240109
  Serious: No
  Sender: FDA-Public Use
  Company Number: US-AMGEN-USASP2023165605

PATIENT
  Age: 56 Year
  Sex: Female
  Weight: 58.3 kg

DRUGS (1)
  1. NEULASTA [Suspect]
     Active Substance: PEGFILGRASTIM
     Indication: Cytopenia
     Dosage: 6 MILLIGRAM
     Route: 065

REACTIONS (3)
  - Device occlusion [Unknown]
  - Product communication issue [Unknown]
  - Device use issue [Unknown]

NARRATIVE: CASE EVENT DATE: 20230913
